FAERS Safety Report 7996392-7 (Version None)
Quarter: 2011Q4

REPORT INFORMATION
  Report Type: 
  Country: None (occurrence: None)
  Receive Date: 20111220
  Receipt Date: 20111213
  Transmission Date: 20120403
  Serious: Yes (Hospitalization)
  Sender: FDA-Public Use
  Company Number: JP-MERCK-1112USA01958

PATIENT
  Age: 86 Year
  Sex: Female

DRUGS (9)
  1. WARFARIN [Concomitant]
     Route: 048
  2. ACTONEL [Concomitant]
     Route: 048
  3. ACETAMINOPHEN [Concomitant]
     Route: 048
  4. AZULFIDINE [Concomitant]
     Route: 048
  5. JANUVIA [Concomitant]
     Route: 048
  6. PEPCID [Suspect]
     Route: 048
  7. PREDNISOLONE [Concomitant]
     Route: 048
  8. HYDROCHLOROTHIAZIDE AND LOSARTAN POTASSIUM [Concomitant]
     Route: 048
  9. ALSETIN [Concomitant]
     Route: 048

REACTIONS (2)
  - BLOOD CREATINE PHOSPHOKINASE INCREASED [None]
  - MUSCULAR WEAKNESS [None]
